FAERS Safety Report 18425468 (Version 1)
Quarter: 2020Q4

REPORT INFORMATION
  Report Type: Spontaneous
  Country: US (occurrence: US)
  Receive Date: 20201026
  Receipt Date: 20201026
  Transmission Date: 20210114
  Serious: No
  Sender: FDA-Public Use
  Company Number: None

PATIENT
  Age: 56 Year
  Sex: Female
  Weight: 49.9 kg

DRUGS (1)
  1. DULOXETINE 20MG [Suspect]
     Active Substance: DULOXETINE
     Indication: PAIN
     Route: 048
     Dates: start: 20200804, end: 20200805

REACTIONS (5)
  - Heart rate increased [None]
  - Nonspecific reaction [None]
  - Extrapyramidal disorder [None]
  - Blood pressure increased [None]
  - Restlessness [None]

NARRATIVE: CASE EVENT DATE: 20200804
